FAERS Safety Report 8464391-7 (Version None)
Quarter: 2012Q2

REPORT INFORMATION
  Report Type: 
  Country: None (occurrence: None)
  Receive Date: 20120626
  Receipt Date: 20120613
  Transmission Date: 20120825
  Serious: Yes (Other)
  Sender: FDA-Public Use
  Company Number: JP-SP-2012-06190

PATIENT
  Age: 63 Year
  Sex: Male

DRUGS (1)
  1. IMMUCYST [Suspect]
     Indication: BLADDER CANCER
     Route: 043

REACTIONS (4)
  - NODULE [None]
  - BOVINE TUBERCULOSIS [None]
  - DISSEMINATED TUBERCULOSIS [None]
  - PYREXIA [None]
